FAERS Safety Report 8508575-8 (Version None)
Quarter: 2012Q3

REPORT INFORMATION
  Report Type: 
  Country: None (occurrence: None)
  Receive Date: 20120713
  Receipt Date: 20120704
  Transmission Date: 20120928
  Serious: Yes (Other)
  Sender: FDA-Public Use
  Company Number: US-ASTRAZENECA-2012SE45701

PATIENT
  Age: 64 Year
  Sex: Male
  Weight: 122 kg

DRUGS (25)
  1. SPIRIVA [Concomitant]
     Dosage: ONE PUFF EVERY DAY
  2. ACETAMINOPHEN [Concomitant]
     Dosage: TWO TABLETS EVERY FOUR HOURS PRN
     Route: 048
  3. SENSIPAR [Concomitant]
     Route: 048
  4. PNEUMOCOCCAL VACCINE [Concomitant]
     Route: 030
  5. NEXIUM [Suspect]
     Route: 048
  6. ASPIRIN [Concomitant]
     Indication: CHEST PAIN
     Route: 048
  7. PROCARDIA [Concomitant]
     Route: 048
  8. PROMETHAZINE [Concomitant]
     Indication: NAUSEA
     Route: 042
  9. ZOFRON [Concomitant]
     Indication: NAUSEA
     Route: 042
  10. LOTREL [Concomitant]
     Dosage: 5/40 ONE
     Route: 048
  11. NITROGLYCERIN [Concomitant]
  12. OXYGEN [Concomitant]
  13. NOVOLIN 70/30 [Concomitant]
  14. PHOSLO [Concomitant]
     Route: 048
  15. DEXTROSE [Concomitant]
     Route: 042
  16. NORMAL SALINE SOLUTION [Concomitant]
     Route: 042
  17. ACTOS [Concomitant]
     Route: 048
  18. ADVAIR DISKUS 100/50 [Concomitant]
     Dosage: ONE PUFF EVERY 12 HOURS
  19. LIPITOR [Concomitant]
     Route: 048
  20. NEPHROCAPS [Concomitant]
     Route: 048
  21. DIPHENHYDRAMINE HCL [Concomitant]
     Route: 042
  22. ENGERIX-B [Concomitant]
     Route: 030
  23. CLONIDINE [Concomitant]
     Route: 048
  24. FLUVIRIN [Concomitant]
     Route: 030
  25. ZOFRON [Concomitant]
     Indication: VOMITING
     Route: 042

REACTIONS (3)
  - RENAL FAILURE CHRONIC [None]
  - DIABETIC NEPHROPATHY [None]
  - HYPOXIA [None]
